FAERS Safety Report 18518055 (Version 2)
Quarter: 2020Q4

REPORT INFORMATION
  Report Type: Spontaneous
  Country: DE (occurrence: DE)
  Receive Date: 20201118
  Receipt Date: 20201208
  Transmission Date: 20210114
  Serious: No
  Sender: FDA-Public Use
  Company Number: DE-GW PHARMA-202011DEGW03880

PATIENT

DRUGS (9)
  1. TOPIRAMATE. [Concomitant]
     Active Substance: TOPIRAMATE
     Indication: PRODUCT USED FOR UNKNOWN INDICATION
     Dosage: 100 MILLIGRAM, BID (100-0-100MG)
     Route: 065
     Dates: start: 202004
  2. EPIDIOLEX [Suspect]
     Active Substance: CANNABIDIOL
     Indication: TEMPORAL LOBE EPILEPSY
     Dosage: 300 MILLIGRAM, BID
     Route: 048
     Dates: start: 202010
  3. LEVETIRACETAM. [Concomitant]
     Active Substance: LEVETIRACETAM
     Indication: PRODUCT USED FOR UNKNOWN INDICATION
     Dosage: 2000 MILLIGRAM, BID (2000-0-2000MG)
     Route: 065
     Dates: start: 2004
  4. LAMOTRIGINE. [Concomitant]
     Active Substance: LAMOTRIGINE
     Indication: PRODUCT USED FOR UNKNOWN INDICATION
     Dosage: 300 MILLIGRAM, BID (300-0-300MG)
     Route: 065
     Dates: start: 202004
  5. SATIVEX [Suspect]
     Active Substance: NABIXIMOLS
     Indication: CEREBRAL PALSY
     Dosage: INITIALLY ACCORDING TO TITRATION PLAN
     Route: 002
     Dates: start: 2017
  6. SATIVEX [Suspect]
     Active Substance: NABIXIMOLS
     Dosage: 5 ACTUATION, QD
     Route: 002
  7. LACOSAMIDE. [Concomitant]
     Active Substance: LACOSAMIDE
     Indication: PRODUCT USED FOR UNKNOWN INDICATION
     Dosage: UNK
     Route: 065
  8. SATIVEX [Suspect]
     Active Substance: NABIXIMOLS
     Dosage: 1 ACTUATION, QD (1 AT NIGHT)
     Route: 002
  9. BACLOFEN. [Concomitant]
     Active Substance: BACLOFEN
     Indication: PRODUCT USED FOR UNKNOWN INDICATION
     Dosage: 12.5 MILLIGRAM, QD (0-0-0-12.5MG)
     Route: 065
     Dates: start: 202004

REACTIONS (10)
  - Dizziness [Not Recovered/Not Resolved]
  - Product dose omission issue [Unknown]
  - Drug ineffective for unapproved indication [Unknown]
  - Fatigue [Unknown]
  - Drug intolerance [Not Recovered/Not Resolved]
  - Sluggishness [Not Recovered/Not Resolved]
  - Sleep disorder [Not Recovered/Not Resolved]
  - Muscle spasticity [Unknown]
  - Product use in unapproved indication [Unknown]
  - Insomnia [Unknown]

NARRATIVE: CASE EVENT DATE: 2017
